FAERS Safety Report 5030607-2 (Version None)
Quarter: 2006Q2

REPORT INFORMATION
  Report Type: 
  Country: None (occurrence: None)
  Receive Date: 20060615
  Receipt Date: 20060605
  Transmission Date: 20061013
  Serious: Yes (Life-Threatening, Hospitalization, Other)
  Sender: FDA-Public Use
  Company Number: 2006072695

PATIENT
  Sex: Female

DRUGS (11)
  1. PREDNISONE TAB [Suspect]
     Indication: ILL-DEFINED DISORDER
     Dates: start: 20060410
  2. LYRICA [Suspect]
     Indication: NEURALGIA
     Dosage: 150 MG (50 MG, 3 IN 1 D)
     Dates: start: 20060410, end: 20060401
  3. METFORMIN [Suspect]
     Indication: ILL-DEFINED DISORDER
     Dates: start: 20030101, end: 20060414
  4. GLUCOPHAGE [Concomitant]
  5. VICODIN [Concomitant]
  6. HYDROCHLOROTHIAZIDE [Concomitant]
  7. ASPIRIN [Concomitant]
  8. LIPITOR [Concomitant]
  9. LISINOPRIL [Concomitant]
  10. VITAMIN C (VITAMIN C) [Concomitant]
  11. MULTIVITAMIN [Concomitant]

REACTIONS (9)
  - BACK DISORDER [None]
  - CARDIO-RESPIRATORY ARREST [None]
  - DEHYDRATION [None]
  - DIALYSIS [None]
  - LACTIC ACIDOSIS [None]
  - LOSS OF CONSCIOUSNESS [None]
  - NEURALGIA [None]
  - RENAL FAILURE ACUTE [None]
  - WEIGHT DECREASED [None]
